FAERS Safety Report 5659111-5 (Version None)
Quarter: 2008Q1

REPORT INFORMATION
  Report Type: 
  Country: None (occurrence: None)
  Receive Date: 20080219
  Receipt Date: 20071018
  Transmission Date: 20080703
  Serious: No
  Sender: FDA-Public Use
  Company Number: WAES 0709USA03184

PATIENT
  Age: 56 Year
  Sex: Female
  Weight: 92.0802 kg

DRUGS (2)
  1. JANUVIA [Suspect]
     Indication: TYPE 2 DIABETES MELLITUS
     Dosage: 100 MG/DAILY/PO
     Route: 048
     Dates: start: 20070829, end: 20070906
  2. METFORMIN HCL [Concomitant]

REACTIONS (1)
  - VISION BLURRED [None]
